FAERS Safety Report 11152410 (Version 1)
Quarter: 2015Q2

REPORT INFORMATION
  Report Type: Spontaneous
  Country: JP (occurrence: JP)
  Receive Date: 20150601
  Receipt Date: 20150601
  Transmission Date: 20150821
  Serious: Yes (Other)
  Sender: FDA-Public Use
  Company Number: JP-BAYER-2015-279975

PATIENT
  Sex: Male

DRUGS (4)
  1. AMLODIPINE [Concomitant]
     Active Substance: AMLODIPINE BESYLATE
     Route: 064
  2. CARVEDILOL. [Concomitant]
     Active Substance: CARVEDILOL
     Route: 064
  3. NIFEDIPINE. [Suspect]
     Active Substance: NIFEDIPINE
     Route: 064
  4. VALSARTAN. [Concomitant]
     Active Substance: VALSARTAN
     Route: 064

REACTIONS (2)
  - Foetal exposure timing unspecified [Recovered/Resolved]
  - Low birth weight baby [None]
